FAERS Safety Report 24627478 (Version 1)
Quarter: 2024Q4

REPORT INFORMATION
  Report Type: Other
  Country: GB (occurrence: GB)
  Receive Date: 20241116
  Receipt Date: 20241116
  Transmission Date: 20250114
  Serious: Yes (Other)
  Sender: MACLEODS
  Company Number: None

PATIENT

DRUGS (1)
  1. DIMETHYL FUMARATE [Suspect]
     Active Substance: DIMETHYL FUMARATE
     Indication: Multiple sclerosis
     Route: 065
     Dates: start: 20210401

REACTIONS (4)
  - Gastritis [Recovering/Resolving]
  - Anal incontinence [Unknown]
  - Diarrhoea [Recovering/Resolving]
  - Flushing [Unknown]
